FAERS Safety Report 8423271 (Version 2)
Quarter: 2013Q1

REPORT INFORMATION
  Report Type: Spontaneous
  Country: BE (occurrence: BE)
  Receive Date: 20120223
  Receipt Date: 20130104
  Transmission Date: 20140127
  Serious: Yes (Other)
  Sender: FDA-Public Use
  Company Number: BE-B.I. PHARMACEUTICALS,INC./RIDGEFIELD-2012-EU-00996GD

PATIENT
  Age: 5 Year
  Sex: Male

DRUGS (1)
  1. PRAMIPEXOLE [Suspect]
     Indication: MOTOR DYSFUNCTION

REACTIONS (2)
  - Hypoglycaemia [Recovered/Resolved]
  - Hypotension [Unknown]
